FAERS Safety Report 5526126-7 (Version None)
Quarter: 2007Q4

REPORT INFORMATION
  Report Type: 
  Country: None (occurrence: None)
  Receive Date: 20071120
  Receipt Date: 20071106
  Transmission Date: 20080405
  Serious: Yes (Other)
  Sender: FDA-Public Use
  Company Number: 2007AL004782

PATIENT
  Sex: Female

DRUGS (2)
  1. GABAPENTIN [Suspect]
     Indication: NEURALGIA
     Dosage: 300 MG; QD; PO
     Route: 048
     Dates: start: 20070929
  2. DESOGESTREL [Concomitant]

REACTIONS (2)
  - DRUG INTERACTION [None]
  - PREGNANCY TEST POSITIVE [None]
